FAERS Safety Report 6268527-8 (Version None)
Quarter: 2009Q3

REPORT INFORMATION
  Report Type: 
  Country: None (occurrence: None)
  Receive Date: 20090715
  Receipt Date: 20090703
  Transmission Date: 20100115
  Serious: Yes (Other)
  Sender: FDA-Public Use
  Company Number: JP-PFIZER INC-2009225069

PATIENT
  Age: 53 Year

DRUGS (2)
  1. ZITHROMAC SR [Suspect]
     Indication: PERIODONTITIS
     Route: 048
     Dates: start: 20090514, end: 20090514
  2. NORVASC [Concomitant]
     Dosage: UNK
     Route: 048
     Dates: start: 20090113

REACTIONS (1)
  - SHOCK [None]
